FAERS Safety Report 5092088-2 (Version None)
Quarter: 2006Q3

REPORT INFORMATION
  Report Type: 
  Country: None (occurrence: None)
  Receive Date: 20060828
  Receipt Date: 20060828
  Transmission Date: 20061208
  Serious: Yes (Hospitalization)
  Sender: FDA-Public Use
  Company Number: None

PATIENT
  Age: 27 Year
  Sex: Male
  Weight: 96 kg

DRUGS (6)
  1. ACYCLOVIR [Suspect]
     Indication: RENAL FAILURE ACUTE
     Dosage: 1500 MG, 1 G Q 8 PR
     Route: 054
     Dates: start: 20060509, end: 20060511
  2. ACYCLOVIR [Suspect]
     Indication: RENAL TUBULAR DISORDER
     Dosage: 1500 MG, 1 G Q 8 PR
     Route: 054
     Dates: start: 20060509, end: 20060511
  3. BACLOFEN [Concomitant]
  4. COLCHICIN [Concomitant]
  5. CEFTRIAXONE [Concomitant]
  6. TEGRETOL [Concomitant]

REACTIONS (3)
  - BLOOD CREATINE INCREASED [None]
  - DIALYSIS [None]
  - RENAL TUBULAR NECROSIS [None]
